FAERS Safety Report 8235988-4 (Version None)
Quarter: 2012Q1

REPORT INFORMATION
  Report Type: 
  Country: None (occurrence: None)
  Receive Date: 20120326
  Receipt Date: 20120319
  Transmission Date: 20120608
  Serious: No
  Sender: FDA-Public Use
  Company Number: US-BAYER-2012-028136

PATIENT
  Sex: Female

DRUGS (3)
  1. ALEVE (CAPLET) [Suspect]
     Indication: PAIN
     Dosage: 2 DF, ONCE
     Route: 048
  2. ANALGESICS [Concomitant]
     Dosage: 800 MG, ONCE
     Route: 048
  3. ALEVE (CAPLET) [Suspect]
     Dosage: 3 DF, ONCE
     Route: 048

REACTIONS (1)
  - PAIN [None]
